FAERS Safety Report 22352641 (Version 1)
Quarter: 2023Q2

REPORT INFORMATION
  Report Type: Spontaneous
  Country: US (occurrence: US)
  Receive Date: 20230523
  Receipt Date: 20230523
  Transmission Date: 20230722
  Serious: No
  Sender: FDA-Public Use
  Company Number: US-SA-SAC20230518001318

PATIENT
  Sex: Female
  Weight: 83.9 kg

DRUGS (1)
  1. DUPIXENT [Suspect]
     Active Substance: DUPILUMAB
     Indication: Sinus polyp
     Dosage: 300MG , QOW
     Route: 058

REACTIONS (2)
  - Malaise [Unknown]
  - Product use in unapproved indication [Unknown]
